FAERS Safety Report 4562808-1 (Version None)
Quarter: 2005Q1

REPORT INFORMATION
  Report Type: 
  Country: None (occurrence: None)
  Receive Date: 20050127
  Receipt Date: 20040427
  Transmission Date: 20050727
  Serious: Yes (Other)
  Sender: FDA-Public Use
  Company Number: CH-GLAXOSMITHKLINE-B0331479A

PATIENT
  Age: 64 Year
  Sex: Male
  Weight: 96 kg

DRUGS (5)
  1. HYCAMTIN [Suspect]
     Indication: SMALL CELL LUNG CANCER STAGE UNSPECIFIED
     Dosage: 1.5MGM2 PER DAY
     Route: 042
     Dates: start: 20040223, end: 20040408
  2. ALLOPURINOL [Concomitant]
     Dosage: 100MG PER DAY
     Route: 048
     Dates: start: 20040223
  3. ATENOLOL [Concomitant]
     Indication: HYPERTENSION
     Dosage: 50MG PER DAY
     Route: 048
  4. METOCLOPRAMIDE [Concomitant]
     Indication: VOMITING
     Dosage: 20MG PER DAY
     Route: 042
     Dates: start: 20040201, end: 20040401
  5. DEXAMETHASONE [Concomitant]
     Indication: VOMITING
     Dosage: 4MG PER DAY
     Route: 042

REACTIONS (7)
  - DRUG TOXICITY [None]
  - HAEMORRHAGE [None]
  - VISION BLURRED [None]
  - VISUAL ACUITY REDUCED [None]
  - VISUAL DISTURBANCE [None]
  - VITREOUS DETACHMENT [None]
  - VITREOUS FLOATERS [None]
